FAERS Safety Report 22620605 (Version 3)
Quarter: 2023Q4

REPORT INFORMATION
  Report Type: Report from Study
  Country: US (occurrence: US)
  Receive Date: 20230620
  Receipt Date: 20231012
  Transmission Date: 20240109
  Serious: Yes (Other)
  Sender: FDA-Public Use
  Company Number: US-ABBVIE-5295403

PATIENT
  Sex: Female
  Weight: 115.67 kg

DRUGS (2)
  1. RINVOQ [Suspect]
     Active Substance: UPADACITINIB
     Indication: Psoriasis
     Route: 048
     Dates: start: 202307
  2. RINVOQ [Suspect]
     Active Substance: UPADACITINIB
     Indication: Psoriasis
     Route: 048
     Dates: start: 20211029

REACTIONS (4)
  - Rheumatoid arthritis [Not Recovered/Not Resolved]
  - Herpes zoster [Unknown]
  - Arthritis [Unknown]
  - Joint dislocation [Unknown]
